FAERS Safety Report 13519491 (Version 1)
Quarter: 2017Q2

REPORT INFORMATION
  Report Type: Report from Study
  Country: US (occurrence: US)
  Receive Date: 20170505
  Receipt Date: 20170505
  Transmission Date: 20170830
  Serious: Yes (Other)
  Sender: FDA-Public Use
  Company Number: US-INDIVIOR LIMITED-INDV-101075-2017

PATIENT
  Age: 61 Year
  Sex: Female

DRUGS (1)
  1. SUBOXONE [Suspect]
     Active Substance: BUPRENORPHINE HYDROCHLORIDE\NALOXONE HYDROCHLORIDE
     Indication: PAIN
     Dosage: UNK
     Route: 065

REACTIONS (10)
  - Muscle twitching [Not Recovered/Not Resolved]
  - Tremor [Not Recovered/Not Resolved]
  - Hallucination [Not Recovered/Not Resolved]
  - Panic attack [Not Recovered/Not Resolved]
  - Drug detoxification [Unknown]
  - Therapy cessation [Recovered/Resolved]
  - Drug withdrawal syndrome [Not Recovered/Not Resolved]
  - Off label use [Recovered/Resolved]
  - Nervous system disorder [Unknown]
  - Muscle spasms [Not Recovered/Not Resolved]
